FAERS Safety Report 5275242-6 (Version None)
Quarter: 2007Q1

REPORT INFORMATION
  Report Type: 
  Country: None (occurrence: None)
  Receive Date: 20070320
  Receipt Date: 20070313
  Transmission Date: 20070707
  Serious: Yes (Life-Threatening, Hospitalization)
  Sender: FDA-Public Use
  Company Number: 148813ISR

PATIENT
  Age: 43 Year
  Sex: Female

DRUGS (2)
  1. COPAXONE [Suspect]
     Indication: MULTIPLE SCLEROSIS
     Dosage: 20 MG (20 MG, 1 IN 1 D) SUBCUTANEOUS
     Route: 058
     Dates: start: 20060701, end: 20060907
  2. ORAL CONTRACEPTIVE NOS [Concomitant]

REACTIONS (4)
  - AUTOIMMUNE HEPATITIS [None]
  - DRUG TOXICITY [None]
  - HEPATIC CIRRHOSIS [None]
  - HEPATOTOXICITY [None]
